FAERS Safety Report 4288947-0 (Version None)
Quarter: 2004Q1

REPORT INFORMATION
  Report Type: 
  Country: None (occurrence: None)
  Receive Date: 20040209
  Receipt Date: 20040130
  Transmission Date: 20041129
  Serious: Yes (Other)
  Sender: FDA-Public Use
  Company Number: PHEH2004US01479

PATIENT
  Age: 24 Year
  Sex: Female

DRUGS (3)
  1. ZELNORM [Suspect]
     Indication: IMPAIRED GASTRIC EMPTYING
     Dosage: 6 MG, UNK
     Route: 048
  2. ZELNORM [Suspect]
     Dosage: 2 MG, BID
  3. ZELNORM [Suspect]
     Dosage: 2 MG, QD

REACTIONS (8)
  - CYANOSIS [None]
  - DEHYDRATION [None]
  - DIARRHOEA [None]
  - MALAISE [None]
  - ORTHOSTATIC HYPOTENSION [None]
  - PAIN IN EXTREMITY [None]
  - RESTLESS LEGS SYNDROME [None]
  - SKIN DISCOLOURATION [None]
